FAERS Safety Report 24061023 (Version 6)
Quarter: 2024Q4

REPORT INFORMATION
  Report Type: Spontaneous
  Country: US (occurrence: US)
  Receive Date: 20240708
  Receipt Date: 20241127
  Transmission Date: 20250114
  Serious: No
  Sender: ROCHE
  Company Number: US-ROCHE-10000014884

PATIENT
  Age: 62 Year
  Sex: Female

DRUGS (1)
  1. ERIVEDGE [Suspect]
     Active Substance: VISMODEGIB
     Indication: Basal cell carcinoma
     Route: 048
     Dates: start: 20240310

REACTIONS (4)
  - Muscle spasms [Unknown]
  - Alopecia [Unknown]
  - Ageusia [Unknown]
  - Ageusia [Unknown]

NARRATIVE: CASE EVENT DATE: 20240501
